FAERS Safety Report 8947704 (Version 2)
Quarter: 2012Q4

REPORT INFORMATION
  Report Type: 
  Country: KR (occurrence: KR)
  Receive Date: 20121205
  Receipt Date: 20121210
  Transmission Date: 20130627
  Serious: Yes (Other)
  Sender: FDA-Public Use
  Company Number: PHHY2012KR111035

PATIENT
  Age: 83 Year
  Sex: Male

DRUGS (5)
  1. FLUOROURACIL [Suspect]
     Indication: COLON CANCER
     Dosage: 400 mg/m2, UNK
     Route: 042
  2. FLUOROURACIL [Suspect]
     Dosage: 600 mg/m2, for 22 hours on day 1 amd 2
     Route: 042
  3. FLUOROURACIL [Suspect]
     Dosage: 1000 mg/m2, daily
     Route: 042
  4. OXALIPLATIN [Concomitant]
     Indication: COLON CANCER
  5. LEUCOVORIN [Concomitant]
     Indication: COLON CANCER

REACTIONS (6)
  - Acute myocardial infarction [Recovered/Resolved]
  - Coronary artery stenosis [Recovered/Resolved]
  - Arteriospasm coronary [Recovered/Resolved]
  - Chest pain [Recovered/Resolved]
  - Electrocardiogram ST segment elevation [Recovered/Resolved]
  - Hypokinesia [Recovered/Resolved]
